FAERS Safety Report 25887976 (Version 1)
Quarter: 2025Q4

REPORT INFORMATION
  Report Type: Spontaneous
  Country: US (occurrence: US)
  Receive Date: 20251007
  Receipt Date: 20251007
  Transmission Date: 20260118
  Serious: Yes (Other)
  Sender: ROCHE
  Company Number: US-ROCHE-10000402128

PATIENT
  Age: 36 Year
  Sex: Female
  Weight: 61.23 kg

DRUGS (6)
  1. XOLAIR [Suspect]
     Active Substance: OMALIZUMAB
     Indication: Idiopathic urticaria
     Dosage: DOSE WAS (2) 150 MG PFS
     Route: 058
     Dates: start: 20250625
  2. XOLAIR [Suspect]
     Active Substance: OMALIZUMAB
  3. LORATADINE [Concomitant]
     Active Substance: LORATADINE
     Route: 048
  4. ALBUTEROL [Concomitant]
     Active Substance: ALBUTEROL
  5. ACYCLOVIR [Concomitant]
     Active Substance: ACYCLOVIR
  6. BENADRYL [Concomitant]
     Active Substance: DIPHENHYDRAMINE HYDROCHLORIDE

REACTIONS (1)
  - Anaphylactic reaction [Recovering/Resolving]

NARRATIVE: CASE EVENT DATE: 20250625
